FAERS Safety Report 4877900-1 (Version None)
Quarter: 2005Q4

REPORT INFORMATION
  Report Type: 
  Country: None (occurrence: None)
  Receive Date: 20051206
  Receipt Date: 20050916
  Transmission Date: 20060501
  Serious: No
  Sender: FDA-Public Use
  Company Number: USA0509107694

PATIENT
  Age: 59 Year
  Sex: Female

DRUGS (3)
  1. CYMBALTA [Suspect]
     Indication: DEPRESSION
     Dosage: 30 MG/2 DAY
     Dates: start: 20050701, end: 20050909
  2. HYZAAR [Concomitant]
  3. HORMONE REPLACEMENT THERAPY [Concomitant]

REACTIONS (3)
  - EYE DISORDER [None]
  - VISION BLURRED [None]
  - VISUAL ACUITY REDUCED [None]
